FAERS Safety Report 24707756 (Version 3)
Quarter: 2025Q1

REPORT INFORMATION
  Report Type: Spontaneous
  Country: US (occurrence: US)
  Receive Date: 20241206
  Receipt Date: 20250131
  Transmission Date: 20250409
  Serious: Yes (Other)
  Sender: AVADEL CNS PHARMACEUTICALS, LLC
  Company Number: US-AVADEL CNS PHARMACEUTICALS, LLC-2024AVA02316

PATIENT
  Age: 47 Year
  Sex: Female
  Weight: 51.701 kg

DRUGS (13)
  1. LUMRYZ [Suspect]
     Active Substance: SODIUM OXYBATE
     Indication: Narcolepsy
     Dosage: 4.5 G, ONCE NIGHTLY
     Route: 048
     Dates: start: 20241123, end: 20241124
  2. TEGRETOL [Concomitant]
     Active Substance: CARBAMAZEPINE
     Dosage: 200 MG, 2X/DAY
     Route: 048
  3. VITAMIN D3 [Concomitant]
     Active Substance: CHOLECALCIFEROL
  4. DUPIXENT [Concomitant]
     Active Substance: DUPILUMAB
  5. EPIPEN [Concomitant]
     Active Substance: EPINEPHRINE
  6. NEURONTIN [Concomitant]
     Active Substance: GABAPENTIN
     Dosage: 300 MG IN AM, 300 MG MIDDAY, AND 900 MG AT NIGHT
     Route: 048
  7. EMGALITY [Concomitant]
     Active Substance: GALCANEZUMAB-GNLM
     Dosage: 120 MG EVERY 30 DAYS
     Route: 058
  8. NURTEC ODT [Concomitant]
     Active Substance: RIMEGEPANT SULFATE
     Route: 060
  9. PROTONIX [Concomitant]
     Active Substance: PANTOPRAZOLE SODIUM
  10. MINIPRESS [Concomitant]
     Active Substance: PRAZOSIN HYDROCHLORIDE
  11. PREVIDENT 5000 BOOSTER PLUS [Concomitant]
  12. SYNTHROID [Concomitant]
     Active Substance: LEVOTHYROXINE SODIUM
     Dosage: 125 ?G DAILY 30 MINUTES PRIOR TO BREAKFAST, EXCEPT ON SATURDAYS (SKIP DOSE)
     Route: 048
  13. DESYREL [Concomitant]
     Active Substance: TRAZODONE HYDROCHLORIDE

REACTIONS (14)
  - Mental status changes [Recovered/Resolved]
  - Electrocardiogram QT prolonged [Recovering/Resolving]
  - Hypersensitivity [Recovered/Resolved]
  - Feeling cold [Unknown]
  - Cold sweat [Unknown]
  - Chest discomfort [Recovered/Resolved]
  - Hypoaesthesia [Recovered/Resolved]
  - Hypokinesia [Recovered/Resolved]
  - Panic attack [Recovered/Resolved]
  - Paraesthesia [Recovered/Resolved]
  - Dry mouth [Recovered/Resolved]
  - Tremor [Recovered/Resolved]
  - Anxiety [Recovered/Resolved]
  - Incorrect dose administered [Recovered/Resolved]

NARRATIVE: CASE EVENT DATE: 20241123
